FAERS Safety Report 8030716-X (Version None)
Quarter: 2012Q1

REPORT INFORMATION
  Report Type: 
  Country: None (occurrence: None)
  Receive Date: 20120109
  Receipt Date: 20111230
  Transmission Date: 20120608
  Serious: Yes (Hospitalization, Other)
  Sender: FDA-Public Use
  Company Number: ES-ABBOTT-11P-144-0883327-00

PATIENT
  Sex: Female
  Weight: 82 kg

DRUGS (14)
  1. CALCIUM ACETATE [Concomitant]
     Indication: ADVERSE DRUG REACTION
  2. VITAMIN D [Concomitant]
     Indication: PROPHYLAXIS
     Route: 048
     Dates: start: 20040811
  3. HUMIRA [Suspect]
     Dosage: OPEN LABEL
     Route: 058
     Dates: start: 20031202
  4. GINKO BILOBA [Concomitant]
     Indication: DIZZINESS
     Route: 048
     Dates: start: 19970101
  5. ALPRAZOLAM [Concomitant]
     Indication: DEPRESSION
     Route: 048
     Dates: start: 19970101
  6. PANTOPRAZOLE [Concomitant]
     Indication: PROPHYLAXIS
  7. PANTOPRAZOLE [Concomitant]
     Indication: GASTRIC DISORDER
     Route: 048
     Dates: start: 20011001
  8. CALCIUM ACETATE [Concomitant]
     Indication: PROPHYLAXIS
     Route: 048
     Dates: start: 20040811
  9. VITAMIN D [Concomitant]
     Indication: ADVERSE DRUG REACTION
  10. HUMIRA [Suspect]
     Indication: RHEUMATOID ARTHRITIS
     Dosage: BLINDED
     Route: 058
     Dates: start: 20011204
  11. HUMIRA [Suspect]
     Route: 058
     Dates: start: 20040224, end: 20110607
  12. CITALOPRAM [Concomitant]
     Indication: DEPRESSION
     Route: 048
     Dates: start: 20020315
  13. CITALOPRAM [Concomitant]
     Route: 048
     Dates: start: 20020315
  14. IRON [Concomitant]
     Indication: IRON DEFICIENCY ANAEMIA
     Route: 048
     Dates: start: 20090217

REACTIONS (2)
  - HAEMORRHOIDS [None]
  - RECTAL CANCER [None]
